FAERS Safety Report 4808102-2 (Version None)
Quarter: 2005Q4

REPORT INFORMATION
  Report Type: 
  Country: None (occurrence: None)
  Receive Date: 20051024
  Receipt Date: 20050613
  Transmission Date: 20060501
  Serious: Yes (Death, Hospitalization, Other)
  Sender: FDA-Public Use
  Company Number: US-MERCK-0506USA01939

PATIENT
  Age: 58 Year
  Sex: Male
  Weight: 74 kg

DRUGS (2)
  1. VIOXX [Suspect]
     Indication: PAIN IN EXTREMITY
     Route: 048
  2. [THERAPY UNSPECIFIED] [Concomitant]
     Route: 065

REACTIONS (17)
  - ARTERIOSCLEROSIS CORONARY ARTERY [None]
  - CARDIAC ARREST [None]
  - CARDIAC FAILURE ACUTE [None]
  - DIABETES MELLITUS NON-INSULIN-DEPENDENT [None]
  - DUODENITIS [None]
  - ESCHAR [None]
  - GASTRITIS HYPERTROPHIC [None]
  - GASTROINTESTINAL HAEMORRHAGE [None]
  - HYPOTENSION [None]
  - LOBAR PNEUMONIA [None]
  - MYOCARDIAL INFARCTION [None]
  - OTITIS MEDIA ACUTE [None]
  - RENAL FAILURE CHRONIC [None]
  - RENAL IMPAIRMENT [None]
  - SINUSITIS [None]
  - TRANSMYOCARDIAL REVASCULARISATION [None]
  - ULCER HAEMORRHAGE [None]
